FAERS Safety Report 23558704 (Version 2)
Quarter: 2024Q2

REPORT INFORMATION
  Report Type: Spontaneous
  Country: DE (occurrence: DE)
  Receive Date: 20240223
  Receipt Date: 20240613
  Transmission Date: 20240716
  Serious: Yes (Hospitalization)
  Sender: FDA-Public Use
  Company Number: DE-BAYER-2024A026509

PATIENT
  Sex: Male

DRUGS (2)
  1. GADOBUTROL [Suspect]
     Active Substance: GADOBUTROL
     Indication: Magnetic resonance imaging
     Dosage: UNK, ONCE
     Dates: start: 202312, end: 202312
  2. GADOLINIUM [Suspect]
     Active Substance: GADOLINIUM
     Dosage: 5 INJECTIONS IN TOTAL

REACTIONS (13)
  - Pharyngeal swelling [Recovered/Resolved]
  - Myalgia [None]
  - Hypoaesthesia [None]
  - Nontherapeutic agent blood positive [None]
  - Tremor [None]
  - Muscular weakness [None]
  - Night sweats [None]
  - Headache [None]
  - Arthralgia [None]
  - Heart rate increased [None]
  - Hyperhidrosis [None]
  - Sleep disorder [None]
  - Nontherapeutic agent urine positive [None]

NARRATIVE: CASE EVENT DATE: 20231201
